FAERS Safety Report 8911737 (Version 2)
Quarter: 2013Q1

REPORT INFORMATION
  Report Type: Spontaneous
  Country: US (occurrence: US)
  Receive Date: 20121115
  Receipt Date: 20130119
  Transmission Date: 20140127
  Serious: No
  Sender: FDA-Public Use
  Company Number: US-009507513-1211USA005763

PATIENT
  Age: 52 Year
  Sex: Male

DRUGS (5)
  1. ASMANEX TWISTHALER [Suspect]
     Indication: BRONCHITIS
     Dosage: 220 MICROGRAM, QD
     Route: 048
     Dates: start: 20121030, end: 20121112
  2. ROPINIROLE [Concomitant]
  3. PRISTIQ [Concomitant]
  4. NASONEX [Concomitant]
  5. ANTIMICROBIAL (UNSPECIFIED) [Concomitant]

REACTIONS (2)
  - Rash [Not Recovered/Not Resolved]
  - Pruritus [Not Recovered/Not Resolved]
